FAERS Safety Report 22260522 (Version 1)
Quarter: 2023Q2

REPORT INFORMATION
  Report Type: Spontaneous
  Country: DE (occurrence: DE)
  Receive Date: 20230427
  Receipt Date: 20230427
  Transmission Date: 20230721
  Serious: Yes (Hospitalization, Disabling, Other)
  Sender: FDA-Public Use
  Company Number: DE-002147023-NVSC2023DE083858

PATIENT
  Sex: Male
  Weight: 150 kg

DRUGS (20)
  1. VALSARTAN [Suspect]
     Active Substance: VALSARTAN
     Indication: Hypertension
     Dosage: 1 DOSAGE FORM, QD, (IN MORNING)
     Route: 048
     Dates: start: 20150831, end: 201605
  2. VALSARTAN [Suspect]
     Active Substance: VALSARTAN
     Dosage: 1 DOSAGE FORM, QD
     Route: 065
     Dates: start: 201607, end: 201704
  3. VALSARTAN [Suspect]
     Active Substance: VALSARTAN
     Dosage: 80 MILLIGRAM, 80 MG, (DAILY IN THE MORNING
     Route: 065
     Dates: start: 201411, end: 2015
  4. TORASEMIDE HEXAL [Concomitant]
     Indication: Product used for unknown indication
     Dosage: 10 MILLIGRAM, 10 MG
     Route: 065
  5. MEPIVACAINE HYDROCHLORIDE [Concomitant]
     Active Substance: MEPIVACAINE HYDROCHLORIDE
     Indication: Local anaesthesia
     Dosage: UNK
     Route: 065
     Dates: start: 20150220, end: 20150220
  6. PIROXICAM [Concomitant]
     Active Substance: PIROXICAM
     Indication: Product used for unknown indication
     Dosage: 20 MILLIGRAM, 20 MG
     Route: 065
     Dates: start: 201507
  7. HEPARIN [Concomitant]
     Active Substance: HEPARIN SODIUM
     Indication: Product used for unknown indication
     Dosage: 15000 IU + 10000 IU
     Route: 042
     Dates: start: 20150220, end: 20150220
  8. AMIODARONE [Concomitant]
     Active Substance: AMIODARONE
     Indication: Product used for unknown indication
     Dosage: UNK
     Route: 065
     Dates: start: 201411
  9. NITRENDIPINE [Concomitant]
     Active Substance: NITRENDIPINE
     Indication: Product used for unknown indication
     Dosage: UNK
     Route: 048
     Dates: start: 20150220, end: 20150220
  10. RAMIPRIL [Concomitant]
     Active Substance: RAMIPRIL
     Indication: Product used for unknown indication
     Dosage: 0.5 DOSAGE FORM,
     Route: 065
     Dates: start: 201410
  11. Novodigal [Concomitant]
     Indication: Product used for unknown indication
     Dosage: UNK , QD, UNK, QD, (0.1) (ONCE IN THE MORNING
     Route: 065
     Dates: start: 201410
  12. VERAPAMIL HYDROCHLORIDE [Concomitant]
     Active Substance: VERAPAMIL HYDROCHLORIDE
     Indication: Product used for unknown indication
     Dosage: 1 DOSAGE FORM,
     Route: 065
     Dates: start: 201410
  13. AJMALINE [Concomitant]
     Active Substance: AJMALINE
     Indication: Product used for unknown indication
     Dosage: 1 DOSAGE FORM
     Route: 065
     Dates: start: 20150220, end: 20150220
  14. HYDROCHLOROTHIAZIDE [Concomitant]
     Active Substance: HYDROCHLOROTHIAZIDE
     Indication: Product used for unknown indication
     Dosage: 1 DOSAGE FORM, QD, 1 DOSAGE FORM, QD, (IN MORNING)
     Route: 065
     Dates: start: 201410
  15. PROPOFOL [Concomitant]
     Active Substance: PROPOFOL
     Indication: Anaesthesia
     Dosage: UNK
     Route: 065
     Dates: start: 20150220, end: 20150220
  16. TORSEMIDE [Concomitant]
     Active Substance: TORSEMIDE
     Indication: Product used for unknown indication
     Dosage: UNK, (ONE DOSE IN THE MORNING, HALF OF A DOS
     Route: 065
     Dates: start: 201411
  17. AMIODARONE [Concomitant]
     Active Substance: AMIODARONE
     Indication: Product used for unknown indication
     Dosage: 1 DOSAGE FORM, 1 DOSAGE FORM (200 MG)
     Route: 065
     Dates: start: 201411
  18. AMIODARONE [Concomitant]
     Active Substance: AMIODARONE
     Dosage: 1 DOSAGE FORM
     Route: 065
     Dates: start: 20150220, end: 20150220
  19. DEXAMETHASONE [Concomitant]
     Active Substance: DEXAMETHASONE
     Indication: Product used for unknown indication
     Dosage: 4 MILLIGRAM, 4 MG
     Route: 065
     Dates: start: 201507
  20. MAGNESIUM ASPARTATE\POTASSIUM ASPARTATE [Concomitant]
     Active Substance: MAGNESIUM ASPARTATE\POTASSIUM ASPARTATE
     Indication: Product used for unknown indication
     Dosage: UNK UNK, QD
     Route: 065
     Dates: start: 201411

REACTIONS (15)
  - Cardiac hypertrophy [Unknown]
  - Dizziness [Unknown]
  - Angiopathy [Unknown]
  - Akinesia [Unknown]
  - Skin mass [Unknown]
  - Dyspnoea exertional [Unknown]
  - Myocarditis [Unknown]
  - Pulmonary congestion [Recovering/Resolving]
  - Hyperhidrosis [Unknown]
  - Goitre [Unknown]
  - Cardiac failure [Unknown]
  - Asthenia [Unknown]
  - Dysphagia [Unknown]
  - Atrial thrombosis [Unknown]
  - Hyperthyroidism [Unknown]

NARRATIVE: CASE EVENT DATE: 20141101
